FAERS Safety Report 7445600-X (Version None)
Quarter: 2011Q2

REPORT INFORMATION
  Report Type: 
  Country: None (occurrence: None)
  Receive Date: 20110429
  Receipt Date: 20110422
  Transmission Date: 20111010
  Serious: Yes (Hospitalization, Other)
  Sender: FDA-Public Use
  Company Number: US-ROCHE-762940

PATIENT
  Sex: Female
  Weight: 47.6 kg

DRUGS (15)
  1. PROPRANOLOL [Concomitant]
     Indication: HYPERTENSION
     Dosage: IN MORNING
     Route: 048
  2. CHLORPHENIRAMINE MALEATE [Concomitant]
  3. NORVASC [Concomitant]
     Indication: HYPERTENSION
     Dosage: IN MORNING
     Route: 048
  4. BONIVA [Suspect]
     Route: 048
  5. OXYTROL [Concomitant]
     Dosage: DOSE REPORTED AS: 3.9
     Route: 062
     Dates: start: 20100101
  6. FLAXSEED [Concomitant]
     Dosage: FLAXSEED OIL
  7. BONIVA [Suspect]
     Indication: OSTEOPOROSIS
     Route: 048
  8. NAMENDA [Concomitant]
  9. COCONUT OIL [Concomitant]
  10. CALCIUM [Concomitant]
  11. VITAMIN B COMPLEX CAP [Concomitant]
  12. DEXTROMETHORPHAN [Concomitant]
  13. LISINOPRIL [Concomitant]
     Indication: HYPERTENSION
     Dosage: IN MORNING
     Route: 048
  14. SENNA [Concomitant]
  15. ARICEPT [Concomitant]
     Indication: DEMENTIA
     Dosage: AT NIGHT
     Route: 048
     Dates: start: 20090101

REACTIONS (4)
  - FALL [None]
  - THROMBOSIS [None]
  - EPISTAXIS [None]
  - CONTUSION [None]
